FAERS Safety Report 18706652 (Version 14)
Quarter: 2024Q3

REPORT INFORMATION
  Report Type: Report from Study
  Country: JP (occurrence: JP)
  Receive Date: 20210106
  Receipt Date: 20240702
  Transmission Date: 20241016
  Serious: Yes (Death, Hospitalization, Other)
  Sender: ABBVIE
  Company Number: JP-ABBVIE-21K-087-3718106-00

PATIENT
  Age: 69 Year
  Sex: Female
  Weight: 60.4 kg

DRUGS (48)
  1. RINVOQ [Suspect]
     Active Substance: UPADACITINIB
     Indication: Rheumatoid arthritis
     Dosage: FORM STRENGTH: 15 MILLIGRAM
     Route: 048
     Dates: start: 20201112, end: 20231011
  2. RINVOQ [Suspect]
     Active Substance: UPADACITINIB
     Indication: Rheumatoid arthritis
     Dosage: FORM STRENGTH: 15 MILLIGRAM
     Route: 048
     Dates: start: 20200616, end: 20201101
  3. MEROPENEM [Concomitant]
     Active Substance: MEROPENEM
     Indication: Interstitial lung disease
     Dosage: LAST ADMINISTRATION DATE: 2023
     Dates: start: 20230928
  4. MEROPENEM [Concomitant]
     Active Substance: MEROPENEM
     Indication: Interstitial lung disease
     Dates: start: 20231008
  5. MEROPENEM [Concomitant]
     Active Substance: MEROPENEM
     Indication: Interstitial lung disease
     Dosage: LAST ADMINISTRATION DATE: 2023
     Dates: start: 20230815
  6. METHOTREXATE [Suspect]
     Active Substance: METHOTREXATE
     Indication: Rheumatoid arthritis
     Route: 065
     Dates: end: 20200702
  7. METHOTREXATE [Suspect]
     Active Substance: METHOTREXATE
     Indication: Rheumatoid arthritis
     Dosage: 10 MG/WEEK
     Route: 065
     Dates: start: 20200708
  8. IGURATIMOD [Suspect]
     Active Substance: IGURATIMOD
     Indication: Rheumatoid arthritis
     Route: 065
     Dates: end: 20200714
  9. PIPERACILLIN AND TAZOBACTAM [Concomitant]
     Active Substance: PIPERACILLIN SODIUM\TAZOBACTAM SODIUM
     Indication: Interstitial lung disease
     Dates: start: 20230811, end: 20230814
  10. PIPERACILLIN AND TAZOBACTAM [Concomitant]
     Active Substance: PIPERACILLIN SODIUM\TAZOBACTAM SODIUM
     Indication: Interstitial lung disease
     Dates: start: 20230924, end: 20230924
  11. PREDNISOLONE [Concomitant]
     Active Substance: PREDNISOLONE
     Indication: Rheumatoid arthritis
     Dates: end: 20201020
  12. PREDNISOLONE [Concomitant]
     Active Substance: PREDNISOLONE
     Indication: Rheumatoid arthritis
     Dates: start: 20201021, end: 20201125
  13. PREDNISOLONE [Concomitant]
     Active Substance: PREDNISOLONE
     Indication: Rheumatoid arthritis
     Dates: start: 20201126
  14. MOLNUPIRAVIR [Concomitant]
     Active Substance: MOLNUPIRAVIR
     Indication: COVID-19
  15. SULFASALAZINE [Concomitant]
     Active Substance: SULFASALAZINE
     Indication: Rheumatoid arthritis
     Route: 065
  16. FLUCONAZOLE [Concomitant]
     Active Substance: FLUCONAZOLE
     Indication: Oral candidiasis
     Dosage: 100 MG
     Dates: start: 20230905, end: 20230911
  17. FLUCONAZOLE [Concomitant]
     Active Substance: FLUCONAZOLE
     Indication: Oral candidiasis
     Dosage: 100 MG
     Dates: start: 20230923, end: 20230927
  18. FLUCONAZOLE [Concomitant]
     Active Substance: FLUCONAZOLE
     Indication: Oral candidiasis
     Dosage: 100 MG
     Dates: start: 20230923, end: 20230927
  19. FLUCONAZOLE [Concomitant]
     Active Substance: FLUCONAZOLE
     Indication: Oral candidiasis
     Dosage: 200 MG
     Dates: start: 20230918, end: 20230922
  20. CELECOXIB [Concomitant]
     Active Substance: CELECOXIB
     Indication: Rheumatoid arthritis
     Route: 065
  21. GANCICLOVIR [Concomitant]
     Active Substance: GANCICLOVIR
     Indication: Cytomegalovirus infection
     Dosage: 70 MG
     Dates: start: 20231004, end: 20231007
  22. GANCICLOVIR [Concomitant]
     Active Substance: GANCICLOVIR
     Indication: Cytomegalovirus infection
     Dosage: 70 MG
     Dates: start: 20230926, end: 20230928
  23. URSODIOL [Concomitant]
     Active Substance: URSODIOL
     Indication: Product used for unknown indication
     Route: 048
  24. ITRACONAZOLE [Concomitant]
     Active Substance: ITRACONAZOLE
     Indication: Oral candidiasis
     Dosage: 200 MG
     Dates: start: 20230912, end: 20230917
  25. ITRACONAZOLE [Concomitant]
     Active Substance: ITRACONAZOLE
     Indication: Oral candidiasis
     Dosage: 200 MG
     Dates: start: 20230912, end: 20230917
  26. ICOSAPENT ETHYL [Concomitant]
     Active Substance: ICOSAPENT ETHYL
     Indication: Product used for unknown indication
     Route: 048
  27. VALGANCICLOVIR [Concomitant]
     Active Substance: VALGANCICLOVIR
     Indication: Cytomegalovirus infection
     Dosage: 1800 MILLIGRAM
     Dates: start: 20230918, end: 20230920
  28. VALGANCICLOVIR [Concomitant]
     Active Substance: VALGANCICLOVIR
     Indication: Cytomegalovirus infection
     Dosage: 1800 MILLIGRAM
     Dates: start: 20230921
  29. ESOMEPRAZOLE MAGNESIUM [Concomitant]
     Active Substance: ESOMEPRAZOLE MAGNESIUM
     Indication: Product used for unknown indication
     Route: 048
  30. VANCOMYCIN HYDROCHLORIDE [Concomitant]
     Active Substance: VANCOMYCIN HYDROCHLORIDE
     Indication: Interstitial lung disease
     Dosage: 1 G
     Dates: start: 20230913, end: 20230919
  31. VANCOMYCIN HYDROCHLORIDE [Concomitant]
     Active Substance: VANCOMYCIN HYDROCHLORIDE
     Indication: Interstitial lung disease
     Dosage: 1 G
     Dates: start: 20230913, end: 20230919
  32. VANCOMYCIN HYDROCHLORIDE [Concomitant]
     Active Substance: VANCOMYCIN HYDROCHLORIDE
     Indication: Interstitial lung disease
     Dates: start: 20231008
  33. SULFAMETHOXAZOLE AND TRIMETHOPRIM [Concomitant]
     Active Substance: SULFAMETHOXAZOLE\TRIMETHOPRIM
     Indication: Prophylaxis
     Route: 048
  34. ELDECALCITOL [Concomitant]
     Active Substance: ELDECALCITOL
     Indication: Product used for unknown indication
     Route: 048
  35. MICAFUNGIN [Concomitant]
     Active Substance: MICAFUNGIN SODIUM
     Indication: Oral candidiasis
     Dates: start: 20230923
  36. BERAPROST SODIUM [Concomitant]
     Active Substance: BERAPROST SODIUM
     Indication: Product used for unknown indication
     Route: 048
     Dates: end: 20200630
  37. BERAPROST SODIUM [Concomitant]
     Active Substance: BERAPROST SODIUM
     Indication: Product used for unknown indication
     Route: 048
     Dates: start: 20200918
  38. CALCIUM ASPARTATE [Concomitant]
     Active Substance: CALCIUM ASPARTATE
     Indication: Product used for unknown indication
     Route: 048
     Dates: end: 20201130
  39. PREGABALIN [Concomitant]
     Active Substance: PREGABALIN
     Indication: Product used for unknown indication
     Route: 048
  40. DULOXETINE [Concomitant]
     Active Substance: DULOXETINE
     Indication: Product used for unknown indication
     Route: 048
  41. TOCOPHEROL [Concomitant]
     Active Substance: TOCOPHEROL
     Indication: Product used for unknown indication
     Route: 048
  42. TERIPARATIDE [Concomitant]
     Active Substance: TERIPARATIDE
     Indication: Product used for unknown indication
     Dosage: 56.4 MICROGRAM/WEEK
     Route: 058
     Dates: start: 20200709
  43. LEVOFLOXACIN HEMIHYDRATE [Concomitant]
     Active Substance: LEVOFLOXACIN
     Indication: Interstitial lung disease
     Dates: start: 20230815
  44. LEVOFLOXACIN HEMIHYDRATE [Concomitant]
     Active Substance: LEVOFLOXACIN
     Indication: Interstitial lung disease
     Dates: start: 20230815
  45. CEFMETAZOLE SODIUM [Concomitant]
     Active Substance: CEFMETAZOLE SODIUM
     Indication: Pyelonephritis acute
     Dosage: 1 G
     Dates: start: 20230911, end: 20230917
  46. CEFMETAZOLE SODIUM [Concomitant]
     Active Substance: CEFMETAZOLE SODIUM
     Indication: Pyelonephritis acute
     Route: 041
     Dates: start: 20210615, end: 20210624
  47. CEFMETAZOLE SODIUM [Concomitant]
     Active Substance: CEFMETAZOLE SODIUM
     Indication: Pyelonephritis acute
     Dates: start: 20230926, end: 20230927
  48. MINOCYCLINE [Concomitant]
     Active Substance: MINOCYCLINE HYDROCHLORIDE
     Indication: Urinary tract infection
     Dates: start: 20230915, end: 20230924

REACTIONS (20)
  - Systemic mycosis [Fatal]
  - Stomatitis [Unknown]
  - Interstitial lung disease [Fatal]
  - Device related infection [Unknown]
  - Femoral neck fracture [Recovered/Resolved]
  - COVID-19 [Fatal]
  - Urinary tract infection [Recovered/Resolved]
  - Gastrointestinal haemorrhage [Unknown]
  - Oral candidiasis [Unknown]
  - Liver function test increased [Recovered/Resolved]
  - Pyelonephritis acute [Recovered/Resolved]
  - Staphylococcal bacteraemia [Unknown]
  - Anaemia [Not Recovered/Not Resolved]
  - Pyelonephritis acute [Recovered/Resolved]
  - Urinary tract infection [Unknown]
  - Cytomegalovirus infection [Unknown]
  - Cytomegalovirus gastroenteritis [Unknown]
  - Cytomegalovirus infection [Fatal]
  - General physical health deterioration [Unknown]
  - Pharyngitis [Unknown]

NARRATIVE: CASE EVENT DATE: 20200714
